FAERS Safety Report 5557215-9 (Version None)
Quarter: 2007Q4

REPORT INFORMATION
  Report Type: 
  Country: None (occurrence: None)
  Receive Date: 20071214
  Receipt Date: 20071206
  Transmission Date: 20080405
  Serious: Yes (Other)
  Sender: FDA-Public Use
  Company Number: JP-NOVOPROD-270042

PATIENT
  Age: 11 Year
  Sex: Male
  Weight: 24 kg

DRUGS (2)
  1. NORDITROPIN NORDIFLEX [Suspect]
     Indication: GROWTH HORMONE DEFICIENCY
     Dosage: 4.2 MG, QD
     Route: 058
     Dates: start: 20041105
  2. THYRADIN S [Concomitant]
     Dosage: 2.0-2.5 UG, QD
     Route: 048
     Dates: start: 20041019

REACTIONS (1)
  - KNEE DEFORMITY [None]
